FAERS Safety Report 10101713 (Version 1)
Quarter: 2014Q2

REPORT INFORMATION
  Report Type: Spontaneous
  Country: US (occurrence: None)
  Receive Date: 20140423
  Receipt Date: 20140423
  Transmission Date: 20141212
  Serious: Yes (Disabling)
  Sender: FDA-Public Use
  Company Number: None

PATIENT
  Age: 28 Year
  Sex: Female
  Weight: 58.51 kg

DRUGS (1)
  1. NUVA RING [Suspect]
     Indication: CONTRACEPTION
     Dates: start: 20050201, end: 20140227

REACTIONS (1)
  - Weight increased [None]
